FAERS Safety Report 5700678-6 (Version None)
Quarter: 2008Q2

REPORT INFORMATION
  Report Type: 
  Country: None (occurrence: None)
  Receive Date: 20080410
  Receipt Date: 20080408
  Transmission Date: 20081010
  Serious: Yes (Other)
  Sender: FDA-Public Use
  Company Number: JP-MERCK-0804USA01797

PATIENT
  Sex: Female

DRUGS (4)
  1. FOSAMAX [Suspect]
     Indication: OSTEOPOROSIS
     Route: 048
  2. THEOPHYLLINE [Concomitant]
     Indication: CHRONIC OBSTRUCTIVE PULMONARY DISEASE
     Route: 065
  3. [THERAPY UNSPECIFIED] [Concomitant]
     Indication: REFLUX OESOPHAGITIS
     Route: 065
  4. HORMONES (UNSPECIFIED) [Concomitant]
     Indication: HORMONE THERAPY
     Route: 065

REACTIONS (2)
  - ANOREXIA [None]
  - WEIGHT DECREASED [None]
